FAERS Safety Report 5166294-2 (Version None)
Quarter: 2006Q4

REPORT INFORMATION
  Report Type: 
  Country: None (occurrence: None)
  Receive Date: 20061129
  Receipt Date: 20061114
  Transmission Date: 20070319
  Serious: Yes (Hospitalization)
  Sender: FDA-Public Use
  Company Number: 2006002175

PATIENT
  Age: 58 Year
  Sex: Female

DRUGS (1)
  1. TARCEVA [Suspect]
     Indication: NON-SMALL CELL LUNG CANCER
     Dosage: 150 MG (QD), ORAL
     Route: 048
     Dates: end: 20060801

REACTIONS (5)
  - BLOOD SODIUM INCREASED [None]
  - POLYDIPSIA [None]
  - SPECIFIC GRAVITY URINE INCREASED [None]
  - URINE SODIUM DECREASED [None]
  - VENTRICULAR TACHYCARDIA [None]
